FAERS Safety Report 23541809 (Version 1)
Quarter: 2024Q1

REPORT INFORMATION
  Report Type: Report from Study
  Country: ZA (occurrence: ZA)
  Receive Date: 20240220
  Receipt Date: 20240220
  Transmission Date: 20240410
  Serious: Yes (Death)
  Sender: FDA-Public Use
  Company Number: ZA-ABBOTT-2024A-1377775

PATIENT
  Age: 98 Year
  Sex: Male

DRUGS (2)
  1. CREON [Suspect]
     Active Substance: PANCRELIPASE AMYLASE\PANCRELIPASE LIPASE\PANCRELIPASE PROTEASE
     Indication: Pancreatic failure
     Dosage: CREON 10000 (PANCREATIN) 150 MG TAKE ONE CAPSULE ONCE A DAY
     Route: 048
  2. SULFACETAMIDE [Concomitant]
     Active Substance: SULFACETAMIDE
     Indication: Product used for unknown indication
     Dosage: LENNON SULPHACETAMIDE (SULFACETAMIDE)? 350 MG AS PRESCRIBED
     Route: 048

REACTIONS (1)
  - Malignant neoplasm progression [Fatal]
